FAERS Safety Report 4305493-6 (Version None)
Quarter: 2004Q1

REPORT INFORMATION
  Report Type: 
  Country: None (occurrence: None)
  Receive Date: 20040226
  Receipt Date: 20031007
  Transmission Date: 20041129
  Serious: No
  Sender: FDA-Public Use
  Company Number: US-BRISTOL-MYERS SQUIBB COMPANY-12420626

PATIENT
  Age: 53 Year

DRUGS (4)
  1. ABILIFY [Suspect]
     Indication: PARANOIA
     Route: 048
  2. ELAVIL [Concomitant]
     Dosage: 25 MG HS
     Dates: start: 19890220
  3. PROZAC [Concomitant]
     Dates: start: 19940613
  4. XANAX [Concomitant]
     Dosage: 0.5 MG BID
     Dates: start: 19890220

REACTIONS (1)
  - DROOLING [None]
